FAERS Safety Report 12359446 (Version 1)
Quarter: 2016Q2

REPORT INFORMATION
  Report Type: Spontaneous
  Country: US (occurrence: None)
  Receive Date: 20160511
  Receipt Date: 20160511
  Transmission Date: 20160815
  Serious: Yes (Life-Threatening)
  Sender: FDA-Public Use
  Company Number: None

PATIENT
  Age: 14 Year
  Sex: Male
  Weight: 117.2 kg

DRUGS (1)
  1. AMBISOME [Suspect]
     Active Substance: AMPHOTERICIN B
     Indication: BLASTOMYCOSIS
     Route: 042
     Dates: start: 20160507, end: 20160507

REACTIONS (3)
  - Skin discolouration [None]
  - Hypoxia [None]
  - Bradycardia [None]

NARRATIVE: CASE EVENT DATE: 20160507
